FAERS Safety Report 6891740-3 (Version None)
Quarter: 2010Q3

REPORT INFORMATION
  Report Type: 
  Country: None (occurrence: None)
  Receive Date: 20100731
  Receipt Date: 20071107
  Transmission Date: 20110219
  Serious: No
  Sender: FDA-Public Use
  Company Number: US-PFIZER INC-2007081560

PATIENT
  Sex: Male
  Weight: 63.5 kg

DRUGS (3)
  1. NEURONTIN [Suspect]
     Indication: NEUROPATHY PERIPHERAL
     Route: 048
     Dates: start: 20070911
  2. NEURONTIN [Suspect]
     Indication: NEURALGIA
  3. DOCUSATE [Concomitant]
     Route: 048
     Dates: start: 20060101

REACTIONS (2)
  - ASTHENIA [None]
  - DRUG INEFFECTIVE [None]
